FAERS Safety Report 26174981 (Version 2)
Quarter: 2025Q4

REPORT INFORMATION
  Report Type: Report from Study
  Country: EU (occurrence: EU)
  Receive Date: 20251218
  Receipt Date: 20251229
  Transmission Date: 20260117
  Serious: Yes (Other)
  Sender: PFIZER
  Company Number: EU-AstraZeneca-2023A202263

PATIENT
  Age: 38 Year
  Sex: Female
  Weight: 54 kg

DRUGS (5)
  1. DOXORUBICIN HYDROCHLORIDE [Suspect]
     Active Substance: DOXORUBICIN HYDROCHLORIDE
     Indication: Hormone receptor positive breast cancer
     Dosage: 92 MILLIGRAM, Q2W
     Route: 042
     Dates: start: 20221223
  2. PACLITAXEL [Suspect]
     Active Substance: PACLITAXEL
     Indication: Hormone receptor positive breast cancer
     Dosage: 120 MILLIGRAM, QW
     Route: 042
     Dates: start: 20220930, end: 20221209
  3. DURVALUMAB [Suspect]
     Active Substance: DURVALUMAB
     Indication: Hormone receptor positive breast cancer
     Dosage: 1500 MILLIGRAM, Q4WK
     Route: 042
     Dates: start: 20220930, end: 20221125
  4. OLECLUMAB [Suspect]
     Active Substance: OLECLUMAB
     Indication: Hormone receptor positive breast cancer
     Dosage: 3000 MILLIGRAM
     Route: 042
     Dates: start: 20220930, end: 20221125
  5. CYCLOPHOSPHAMIDE [Suspect]
     Active Substance: CYCLOPHOSPHAMIDE
     Indication: Hormone receptor positive breast cancer
     Dosage: 900 MILLIGRAM, Q2W
     Route: 042
     Dates: start: 20221223

REACTIONS (18)
  - Hepatic cytolysis [Recovered/Resolved]
  - Hypothyroidism [Recovered/Resolved]
  - Optic neuritis [Recovering/Resolving]
  - Neuropathy peripheral [Recovered/Resolved]
  - Hypothyroidism [Recovered/Resolved]
  - Thyroiditis [Recovered/Resolved]
  - Alopecia [Recovered/Resolved]
  - Pollakiuria [Recovered/Resolved]
  - Decreased appetite [Recovered/Resolved]
  - Nausea [Recovered/Resolved]
  - Device related infection [Recovered/Resolved]
  - Diarrhoea [Recovered/Resolved]
  - Ear pain [Recovered/Resolved]
  - Rotator cuff syndrome [Recovered/Resolved]
  - Bronchitis [Recovered/Resolved]
  - Cystitis [Recovered/Resolved]
  - Asthenia [Recovered/Resolved]
  - Alanine aminotransferase increased [Recovered/Resolved]

NARRATIVE: CASE EVENT DATE: 20221003
